FAERS Safety Report 4341421-5 (Version None)
Quarter: 2004Q2

REPORT INFORMATION
  Report Type: 
  Country: None (occurrence: None)
  Receive Date: 20040415
  Receipt Date: 20040406
  Transmission Date: 20050107
  Serious: Yes (Hospitalization)
  Sender: FDA-Public Use
  Company Number: GB-JNJFOC-20040400939

PATIENT
  Age: 49 Year
  Sex: Female

DRUGS (9)
  1. REMICADE [Suspect]
     Indication: RHEUMATOID ARTHRITIS
     Dosage: 300 MG, INTRAVENOUS
     Route: 042
     Dates: start: 20020116
  2. AZATHIOPRINE [Concomitant]
  3. PREDNISOLONE [Concomitant]
  4. THYROXINE (LEVOTHYROXINE SODIUM) [Concomitant]
  5. FLUOXETINE [Concomitant]
  6. CELECOXIB (CELECOXIB) [Concomitant]
  7. PREMPAK C (PREMPAK /OLD FORM/) [Concomitant]
  8. TRAMADOL HCL [Concomitant]
  9. LANSOPRAZOLE [Concomitant]

REACTIONS (2)
  - MONOPLEGIA [None]
  - PAIN [None]
